FAERS Safety Report 8357191-X (Version None)
Quarter: 2012Q2

REPORT INFORMATION
  Report Type: 
  Country: None (occurrence: None)
  Receive Date: 20120514
  Receipt Date: 20120504
  Transmission Date: 20120825
  Serious: Yes (Life-Threatening)
  Sender: FDA-Public Use
  Company Number: FR-ROCHE-1032674

PATIENT
  Sex: Female

DRUGS (7)
  1. CYCLOPHOSPHAMIDE [Suspect]
     Indication: BREAST CANCER
     Route: 042
     Dates: start: 20080101
  2. CARVEDILOL [Concomitant]
  3. XELODA [Suspect]
     Indication: BREAST CANCER
     Route: 048
     Dates: start: 20110906, end: 20110919
  4. CYCLOPHOSPHAMIDE [Suspect]
     Dates: start: 20110601, end: 20110801
  5. DOBUTAMINE HCL [Concomitant]
  6. DOXORUBICIN HCL [Suspect]
     Indication: BREAST CANCER
     Route: 042
     Dates: start: 20110601, end: 20110801
  7. EPIRUBICIN [Suspect]
     Indication: BREAST CANCER
     Route: 042

REACTIONS (5)
  - CARDIAC FAILURE [None]
  - RESPIRATORY DISTRESS [None]
  - HYPOTENSION [None]
  - TACHYCARDIA [None]
  - ACUTE PULMONARY OEDEMA [None]
